FAERS Safety Report 7346821-7 (Version None)
Quarter: 2011Q1

REPORT INFORMATION
  Report Type: 
  Country: None (occurrence: None)
  Receive Date: 20110302
  Receipt Date: 20110222
  Transmission Date: 20110831
  Serious: Yes (Hospitalization)
  Sender: FDA-Public Use
  Company Number: 2011038903

PATIENT
  Age: 65 Year
  Sex: Male
  Weight: 92 kg

DRUGS (11)
  1. MAGNESIA ^DAK^ (MAGNESIUM OXIDE) [Concomitant]
  2. FERRO C (ASCORBIC ACID, FERROUS SULFATE, IRBOFLAVIN, THIAMINE) [Concomitant]
  3. ZOPICLONE (ZOPICLONE) [Concomitant]
  4. MAREVAN ^NYCOMED^ (WARFARIN SODIUM) [Concomitant]
  5. TRADOLAN (TRAMADOL HYDROCHLORIDE) [Concomitant]
  6. PAMOL (PARACETAMOL) [Concomitant]
  7. GABAPENTINE (GABAPENTINE) [Concomitant]
  8. LANSOPRAZOLE [Concomitant]
  9. FRAGMIN [Suspect]
     Indication: THROMBOSIS PROPHYLAXIS
     Dosage: SUBCUTANEOUS
     Route: 058
     Dates: start: 20110208, end: 20110211
  10. BURANA (IBUPROFEN) [Concomitant]
  11. ASCORBIC ACID [Concomitant]

REACTIONS (2)
  - PRURITUS [None]
  - FEELING HOT [None]
